FAERS Safety Report 5904917-8 (Version None)
Quarter: 2008Q4

REPORT INFORMATION
  Report Type: 
  Country: None (occurrence: None)
  Receive Date: 20081001
  Receipt Date: 20080924
  Transmission Date: 20090506
  Serious: Yes (Hospitalization)
  Sender: FDA-Public Use
  Company Number: FR-WYE-H05628808

PATIENT
  Sex: Male

DRUGS (14)
  1. OROKEN [Suspect]
     Indication: PROPHYLAXIS URINARY TRACT INFECTION
     Dosage: UNKNOWN DOSE TWICE A DAY
     Route: 048
     Dates: start: 20080609, end: 20080707
  2. ZYLORIC [Suspect]
     Route: 048
     Dates: start: 20080702, end: 20080705
  3. ZYLORIC [Suspect]
     Route: 048
     Dates: start: 20080521, end: 20080623
  4. NEXIUM [Suspect]
     Route: 048
     Dates: start: 20080521, end: 20080701
  5. THALIDOMIDE [Suspect]
     Indication: MULTIPLE MYELOMA
     Route: 048
     Dates: start: 20080701, end: 20080704
  6. THALIDOMIDE [Suspect]
     Route: 048
     Dates: start: 20080609, end: 20080727
  7. ARANESP [Concomitant]
     Dates: start: 20080522
  8. STILNOX [Concomitant]
  9. ROCEPHIN [Concomitant]
     Dosage: UNKNOWN
     Dates: start: 20080616, end: 20080620
  10. OFLOCET [Concomitant]
     Dosage: UNKNOWN
     Dates: start: 20080616, end: 20080623
  11. ASPEGIC 325 [Concomitant]
     Dosage: UNKNOWN
     Dates: start: 20080609
  12. PROSCAR [Suspect]
     Indication: BENIGN PROSTATIC HYPERPLASIA
     Dosage: UNKNOWN
     Route: 048
     Dates: start: 20080613, end: 20080620
  13. TAMSULOSIN HCL [Suspect]
     Indication: BENIGN PROSTATIC HYPERPLASIA
     Route: 048
     Dates: start: 20080613, end: 20080706
  14. EPREX [Concomitant]

REACTIONS (2)
  - DRUG RASH WITH EOSINOPHILIA AND SYSTEMIC SYMPTOMS [None]
  - VARICELLA [None]
